FAERS Safety Report 7646527-0 (Version None)
Quarter: 2011Q3

REPORT INFORMATION
  Report Type: 
  Country: None (occurrence: None)
  Receive Date: 20110801
  Receipt Date: 20110720
  Transmission Date: 20111222
  Serious: Yes (Death, Other)
  Sender: FDA-Public Use
  Company Number: JP-JNJFOC-20110711713

PATIENT
  Age: 18 Year
  Sex: Male

DRUGS (2)
  1. LEVOFLOXACIN [Suspect]
     Indication: PRODUCT USED FOR UNKNOWN INDICATION
     Route: 065
     Dates: start: 20100301, end: 20100301
  2. NEW LULU A [Suspect]
     Indication: PRODUCT USED FOR UNKNOWN INDICATION
     Route: 065
     Dates: start: 20100301, end: 20100301

REACTIONS (3)
  - PNEUMONIA [None]
  - TOXIC EPIDERMAL NECROLYSIS [None]
  - LIVER DISORDER [None]
